FAERS Safety Report 9625592 (Version 3)
Quarter: 2014Q1

REPORT INFORMATION
  Report Type: Spontaneous
  Country: BR (occurrence: BR)
  Receive Date: 20131016
  Receipt Date: 20140122
  Transmission Date: 20141002
  Serious: Yes (Other)
  Sender: FDA-Public Use
  Company Number: PHHY2013BR114724

PATIENT
  Age: 66 Year
  Sex: Female
  Weight: 75 kg

DRUGS (11)
  1. DIOVAN [Suspect]
     Indication: HYPERTENSION
     Dosage: 2 DF, (320 MG) DAILY
     Route: 048
  2. DIOVAN [Suspect]
     Dosage: 2 DF, (80 MG ) DAILY
     Route: 048
  3. DIOVAN [Suspect]
     Dosage: 2 DF, (160 MG) DAILY
     Route: 048
  4. DIOVAN [Suspect]
     Dosage: 3 DF (160MG), UNK
     Dates: start: 20131009
  5. GLIMEPIRIDE [Concomitant]
     Indication: DIABETES MELLITUS
     Dosage: 2 DF, (4 MG) DAILY
     Route: 048
  6. GALVUS MET [Concomitant]
     Indication: DIABETES MELLITUS
     Dosage: 1 DF, (METF 1000 MG/ VILD 50 MG) DAILY
     Route: 048
  7. ATENOLOL [Concomitant]
     Indication: HYPERTENSION
     Dosage: 2 DF, (50 MG) DAILY
     Route: 048
  8. ATENOLOL [Concomitant]
     Indication: HEART RATE IRREGULAR
  9. FLUOXETINE [Concomitant]
     Indication: DEPRESSION
     Dosage: 1 DF, (20 MG) DAILY
     Route: 048
     Dates: start: 1981
  10. LASIX [Concomitant]
     Indication: HYPERTENSION
     Dosage: 1 DF, DAILY
     Route: 048
  11. LASIX [Concomitant]
     Indication: SWELLING

REACTIONS (4)
  - Vitamin D deficiency [Recovering/Resolving]
  - Blood pressure inadequately controlled [Not Recovered/Not Resolved]
  - Headache [Recovered/Resolved]
  - Blood pressure decreased [Recovered/Resolved]
